FAERS Safety Report 5174333-8 (Version None)
Quarter: 2006Q4

REPORT INFORMATION
  Report Type: 
  Country: None (occurrence: None)
  Receive Date: 20061214
  Receipt Date: 20060509
  Transmission Date: 20070319
  Serious: Yes (Hospitalization)
  Sender: FDA-Public Use
  Company Number: US-ELI_LILLY_AND_COMPANY-US200609002071

PATIENT
  Age: 46 Year
  Sex: Female
  Weight: 107.48 kg

DRUGS (1)
  1. ZYPREXA [Suspect]
     Dosage: 30 MG, UNK

REACTIONS (3)
  - DIABETES MELLITUS [None]
  - PRESCRIBED OVERDOSE [None]
  - THROMBOSIS [None]
